FAERS Safety Report 4738546-9 (Version None)
Quarter: 2005Q3

REPORT INFORMATION
  Report Type: 
  Country: None (occurrence: None)
  Receive Date: 20050803
  Receipt Date: 20050722
  Transmission Date: 20060218
  Serious: Yes (Life-Threatening, Hospitalization)
  Sender: FDA-Public Use
  Company Number: 167-20785-05070361

PATIENT
  Age: 63 Year
  Sex: Male

DRUGS (14)
  1. THALIDOMIDE - PHARMION (THALIDOMIDE) (CAPSULES) [Suspect]
     Indication: SMALL CELL LUNG CANCER STAGE UNSPECIFIED
     Dosage: 100 MG, DAILY, ORAL
     Route: 048
     Dates: start: 20050627, end: 20050720
  2. CARBOPLATIN [Suspect]
     Indication: SMALL CELL LUNG CANCER STAGE UNSPECIFIED
     Dosage: 450 MG, INTRAVENOUS
     Route: 042
     Dates: start: 20050712, end: 20050712
  3. ETOPOSIDE [Suspect]
     Indication: SMALL CELL LUNG CANCER STAGE UNSPECIFIED
     Dosage: SEE IMAGE
     Route: 042
     Dates: start: 20050712, end: 20050712
  4. ETOPOSIDE [Suspect]
     Indication: SMALL CELL LUNG CANCER STAGE UNSPECIFIED
     Dosage: SEE IMAGE
     Route: 042
     Dates: start: 20050713
  5. DEXAMETHASONE [Concomitant]
  6. GRANISETRON (GRANISETRON) [Concomitant]
  7. DOMEPERIDONE (DOMEPERIDONE) [Concomitant]
  8. LACTULOSE [Concomitant]
  9. QUININE SULFATE [Concomitant]
  10. SENNA (SENNA) (TABLETS) [Concomitant]
  11. ZOPICLONE (ZOPICLONE) [Concomitant]
  12. MULTIVITAMINS (MULTIVITAMINS) (TABLETS) [Concomitant]
  13. THIAMINE (THIAMINE) [Concomitant]
  14. VITAMIN B6 (PYRIDOXINE HYDROCHLORIDE) (TABLETS) [Concomitant]

REACTIONS (5)
  - ABDOMINAL PAIN [None]
  - ASTHENIA [None]
  - PAIN IN EXTREMITY [None]
  - PALLOR [None]
  - PERIPHERAL ISCHAEMIA [None]
